FAERS Safety Report 11290231 (Version 8)
Quarter: 2015Q3

REPORT INFORMATION
  Report Type: Spontaneous
  Country: US (occurrence: US)
  Receive Date: 20150721
  Receipt Date: 20150825
  Transmission Date: 20151125
  Serious: Yes (Hospitalization, Other)
  Sender: FDA-Public Use
  Company Number: US-009507513-1507USA008943

PATIENT

DRUGS (4)
  1. TELAPREVIR [Suspect]
     Active Substance: TELAPREVIR
     Indication: HEPATITIS C
     Dosage: UNK
  2. VICTRELIS [Suspect]
     Active Substance: BOCEPREVIR
     Indication: CHRONIC HEPATITIS C
     Dosage: UNK
     Route: 048
  3. REBETOL [Suspect]
     Active Substance: RIBAVIRIN
     Indication: CHRONIC HEPATITIS C
     Dosage: UNK
     Route: 048
  4. PEGINTRON [Suspect]
     Active Substance: PEGINTERFERON ALFA-2B
     Indication: CHRONIC HEPATITIS C
     Dosage: UNK

REACTIONS (19)
  - Adverse event [Unknown]
  - Neutropenia [Unknown]
  - Rash [Unknown]
  - Abdominal pain [Unknown]
  - Anaemia [Unknown]
  - Vomiting [Unknown]
  - No therapeutic response [Unknown]
  - Eye disorder [Unknown]
  - Anxiety [Unknown]
  - Myalgia [Unknown]
  - Pruritus [Unknown]
  - Bacterial infection [Unknown]
  - Diarrhoea [Unknown]
  - Arthralgia [Unknown]
  - Thrombocytopenia [Unknown]
  - Hepatitis C [Unknown]
  - Nausea [Unknown]
  - Alopecia [Unknown]
  - Depression [Unknown]
